FAERS Safety Report 5475748-0 (Version None)
Quarter: 2007Q4

REPORT INFORMATION
  Report Type: 
  Country: None (occurrence: None)
  Receive Date: 20071003
  Receipt Date: 20060919
  Transmission Date: 20080405
  Serious: No
  Sender: FDA-Public Use
  Company Number: US-KINGPHARMUSA00001-K200601192

PATIENT

DRUGS (8)
  1. SONATA [Suspect]
     Indication: INSOMNIA
     Dosage: 10 MG, HS
     Route: 048
     Dates: start: 20060918
  2. ATENOLOL [Concomitant]
  3. ZOCOR [Concomitant]
  4. COZAAR [Concomitant]
  5. ALTACE [Concomitant]
  6. METFORMIN HCL [Concomitant]
  7. XANAX [Concomitant]
  8. TRAMADOL HCL [Concomitant]

REACTIONS (1)
  - DRUG INEFFECTIVE [None]
